FAERS Safety Report 7585698-1 (Version None)
Quarter: 2011Q3

REPORT INFORMATION
  Report Type: 
  Country: None (occurrence: None)
  Receive Date: 20110701
  Receipt Date: 20110617
  Transmission Date: 20111222
  Serious: Yes (Other)
  Sender: FDA-Public Use
  Company Number: GB-RANBAXY-2007RR-09604

PATIENT
  Age: 39 Year
  Sex: Female

DRUGS (3)
  1. FLUOXETINE [Suspect]
     Dosage: 20 MG, QD
     Route: 048
  2. CLOZAPINE [Suspect]
     Dosage: 400 MG, QD
     Route: 048
  3. CLOZAPINE [Suspect]
     Indication: SCHIZOPHRENIA
     Dosage: 500 MG, QD
     Route: 048
     Dates: start: 19941012

REACTIONS (5)
  - TREMOR [None]
  - ELECTROENCEPHALOGRAM ABNORMAL [None]
  - CONFUSIONAL STATE [None]
  - AMNESIA [None]
  - FALL [None]
